FAERS Safety Report 4849205-6 (Version None)
Quarter: 2005Q4

REPORT INFORMATION
  Report Type: 
  Country: None (occurrence: None)
  Receive Date: 20051209
  Receipt Date: 20050624
  Transmission Date: 20060501
  Serious: Yes (Death, Hospitalization)
  Sender: FDA-Public Use
  Company Number: US-MERCK-0506USA03606

PATIENT
  Age: 72 Year
  Sex: Female
  Weight: 68 kg

DRUGS (11)
  1. VIOXX [Suspect]
     Indication: ARTHRITIS
     Route: 048
     Dates: start: 20000701
  2. HYDROCODONE BITARTRATE [Concomitant]
     Indication: PAIN
     Route: 065
     Dates: start: 20001018, end: 20011018
  3. HYDROCODONE BITARTRATE [Concomitant]
     Indication: INFLAMMATION
     Route: 065
     Dates: start: 20001018, end: 20011018
  4. NEURONTIN [Concomitant]
     Indication: PAIN
     Route: 065
     Dates: start: 20001107, end: 20010410
  5. VICOPROFEN [Concomitant]
     Indication: PAIN
     Route: 065
     Dates: start: 20020211, end: 20020314
  6. SKELAXIN [Concomitant]
     Indication: PAIN
     Route: 065
     Dates: start: 20001107, end: 20020207
  7. LIDODERM [Concomitant]
     Indication: PAIN
     Route: 065
     Dates: start: 20010226, end: 20010326
  8. VALTREX [Concomitant]
     Route: 065
  9. MEPREDNISONE [Concomitant]
     Route: 065
  10. LABETALOL HYDROCHLORIDE [Concomitant]
     Indication: HYPERTENSION
     Route: 065
     Dates: start: 20001107, end: 20010528
  11. CELEXA [Concomitant]
     Indication: DEPRESSION
     Route: 065
     Dates: start: 20021107, end: 20040207

REACTIONS (3)
  - DEATH [None]
  - DISORIENTATION [None]
  - FEELING ABNORMAL [None]
